FAERS Safety Report 7339058-9 (Version None)
Quarter: 2011Q1

REPORT INFORMATION
  Report Type: 
  Country: None (occurrence: None)
  Receive Date: 20110308
  Receipt Date: 20110223
  Transmission Date: 20110831
  Serious: Yes (Hospitalization)
  Sender: FDA-Public Use
  Company Number: FR-ELI_LILLY_AND_COMPANY-FR201103000026

PATIENT
  Sex: Female

DRUGS (5)
  1. PREVISCAN [Concomitant]
  2. AMIODARONE [Concomitant]
     Indication: HYPOTHYROIDISM
  3. LEVOTHYROXINE SODIUM [Concomitant]
  4. CYMBALTA [Suspect]
     Indication: BACK PAIN
     Dosage: 60 MG, DAILY (1/D)
     Route: 048
     Dates: start: 20080924, end: 20081003
  5. HEMIGOXINE [Concomitant]
     Route: 048
     Dates: start: 20080901

REACTIONS (2)
  - BLADDER OBSTRUCTION [None]
  - DISORIENTATION [None]
